FAERS Safety Report 23674527 (Version 1)
Quarter: 2024Q1

REPORT INFORMATION
  Report Type: Report from Study
  Country: CN (occurrence: CN)
  Receive Date: 20240326
  Receipt Date: 20240326
  Transmission Date: 20240410
  Serious: Yes (Death, Other)
  Sender: FDA-Public Use
  Company Number: CN-SUN PHARMACEUTICAL INDUSTRIES LTD-2024R1-437978

PATIENT
  Age: 59 Year
  Sex: Female

DRUGS (4)
  1. OXALIPLATIN [Suspect]
     Active Substance: OXALIPLATIN
     Indication: Chemotherapy
     Dosage: 100 MILLIGRAM/SQ. METER
     Route: 065
  2. LEUCOVORIN CALCIUM [Suspect]
     Active Substance: LEUCOVORIN CALCIUM
     Indication: Chemotherapy
     Dosage: 400 MILLIGRAM/SQ. METER
     Route: 065
  3. FLUOROURACIL [Suspect]
     Active Substance: FLUOROURACIL
     Indication: Chemotherapy
     Dosage: 400 MG/M2 AND 46 H INFUSION 2400 MG/M2 EVERY 46 H EVERY 2 WEEKS
     Route: 065
  4. BEVACIZUMAB [Suspect]
     Active Substance: BEVACIZUMAB
     Indication: Rectal cancer
     Dosage: 200 MILLIGRAM
     Route: 065

REACTIONS (2)
  - Disease progression [Fatal]
  - Myelosuppression [Fatal]
